FAERS Safety Report 24205857 (Version 1)
Quarter: 2024Q3

REPORT INFORMATION
  Report Type: Spontaneous
  Country: US (occurrence: None)
  Receive Date: 20240812
  Receipt Date: 20240812
  Transmission Date: 20241016
  Serious: Yes (Other)
  Sender: Public
  Company Number: None

PATIENT
  Age: 77 Year
  Sex: Male
  Weight: 76.05 kg

DRUGS (1)
  1. ACTEMRA [Suspect]
     Active Substance: TOCILIZUMAB
     Indication: Sarcoidosis
     Dosage: OTHER FREQUENCY : EVERY 4 WEEKS;?
     Route: 041

REACTIONS (3)
  - Headache [None]
  - Erythema [None]
  - Swelling face [None]

NARRATIVE: CASE EVENT DATE: 20240809
